FAERS Safety Report 5441364-X (Version None)
Quarter: 2007Q3

REPORT INFORMATION
  Report Type: 
  Country: None (occurrence: None)
  Receive Date: 20070903
  Receipt Date: 20070829
  Transmission Date: 20080115
  Serious: Yes (Other)
  Sender: FDA-Public Use
  Company Number: PHNU2007DE02279

PATIENT
  Age: 72 Year
  Sex: Male

DRUGS (2)
  1. LAMISIL [Suspect]
     Indication: ONYCHOMYCOSIS
     Route: 048
     Dates: start: 20070601
  2. LAMISIL [Suspect]
     Dosage: 250 MG/D
     Route: 048
     Dates: start: 20030318, end: 20030516

REACTIONS (3)
  - ASTHENIA [None]
  - HYPERTENSION [None]
  - MYOCARDIAL INFARCTION [None]
